FAERS Safety Report 8258464-1 (Version None)
Quarter: 2012Q2

REPORT INFORMATION
  Report Type: 
  Country: None (occurrence: None)
  Receive Date: 20120404
  Receipt Date: 20120328
  Transmission Date: 20120825
  Serious: Yes (Hospitalization)
  Sender: FDA-Public Use
  Company Number: IT-PFIZER INC-2012080132

PATIENT
  Age: 48 Year
  Sex: Female

DRUGS (2)
  1. SULFASALAZINE [Suspect]
     Indication: RHEUMATOID ARTHRITIS
     Dosage: 2 G DAILY
     Route: 048
     Dates: start: 20120210, end: 20120228
  2. MEDROL [Concomitant]
     Dosage: 8 MG, UNK

REACTIONS (8)
  - OROPHARYNGEAL PAIN [None]
  - SERUM FERRITIN INCREASED [None]
  - RED BLOOD CELL SEDIMENTATION RATE INCREASED [None]
  - LEUKOCYTOSIS [None]
  - TRANSAMINASES INCREASED [None]
  - C-REACTIVE PROTEIN INCREASED [None]
  - ARTHRALGIA [None]
  - PYREXIA [None]
